FAERS Safety Report 6480281-3 (Version None)
Quarter: 2009Q4

REPORT INFORMATION
  Report Type: 
  Country: None (occurrence: None)
  Receive Date: 20091202
  Receipt Date: 20091119
  Transmission Date: 20100525
  Serious: Yes (Other)
  Sender: FDA-Public Use
  Company Number: PAR_03259_2009

PATIENT
  Sex: Male

DRUGS (1)
  1. TORSEMIDE [Suspect]
     Indication: DRUG USE FOR UNKNOWN INDICATION
     Dosage: (1 DF BID, 20 MG OR 100 MG ORAL)
     Route: 048
     Dates: start: 20090831, end: 20090101

REACTIONS (9)
  - ACCIDENTAL OVERDOSE [None]
  - BLOOD GLUCOSE INCREASED [None]
  - BLOOD PRESSURE DECREASED [None]
  - INCORRECT DOSE ADMINISTERED [None]
  - PRODUCT COLOUR ISSUE [None]
  - PRODUCT QUALITY ISSUE [None]
  - PRODUCT SHAPE ISSUE [None]
  - PRODUCT SIZE ISSUE [None]
  - RENAL IMPAIRMENT [None]
